FAERS Safety Report 6771002-5 (Version None)
Quarter: 2010Q2

REPORT INFORMATION
  Report Type: 
  Country: None (occurrence: None)
  Receive Date: 20100616
  Receipt Date: 20100608
  Transmission Date: 20101027
  Serious: Yes (Hospitalization)
  Sender: FDA-Public Use
  Company Number: US-BIOGENIDEC-2010BI002506

PATIENT
  Age: 34 Year
  Sex: Female

DRUGS (3)
  1. AVONEX [Suspect]
     Indication: MULTIPLE SCLEROSIS
     Dates: start: 20030601, end: 20030801
  2. AVONEX [Suspect]
     Dates: start: 20030901, end: 20090101
  3. AVONEX [Suspect]
     Dates: start: 20100108, end: 20100301

REACTIONS (1)
  - VOMITING [None]
